FAERS Safety Report 7808126-7 (Version None)
Quarter: 2011Q4

REPORT INFORMATION
  Report Type: 
  Country: None (occurrence: None)
  Receive Date: 20111011
  Receipt Date: 20110926
  Transmission Date: 20120403
  Serious: Yes (Death)
  Sender: FDA-Public Use
  Company Number: BR-ROCHE-1002474

PATIENT
  Sex: Female

DRUGS (1)
  1. ALTEPLASE [Suspect]
     Indication: ISCHAEMIC STROKE

REACTIONS (2)
  - SUDDEN DEATH [None]
  - VENTRICULAR FIBRILLATION [None]
